FAERS Safety Report 5648462-6 (Version None)
Quarter: 2008Q1

REPORT INFORMATION
  Report Type: 
  Country: None (occurrence: None)
  Receive Date: 20080304
  Receipt Date: 20080221
  Transmission Date: 20080703
  Serious: Yes (Hospitalization, Other)
  Sender: FDA-Public Use
  Company Number: PHBS2007JP21201

PATIENT
  Age: 69 Year
  Sex: Male

DRUGS (4)
  1. DIOVAN [Suspect]
     Indication: HYPERTENSION
     Dosage: 80 MG/DAY
     Route: 048
     Dates: start: 20050201, end: 20071219
  2. DIGOXIN [Concomitant]
     Dosage: 0.125 MG/DAY
     Route: 048
     Dates: start: 19970101
  3. TRICHLORMETHIAZIDE [Concomitant]
     Dosage: 2 MG/DAY
     Route: 048
     Dates: start: 20000101
  4. STEROIDS NOS [Concomitant]

REACTIONS (3)
  - ANTIBODY TEST POSITIVE [None]
  - CELL MARKER INCREASED [None]
  - INTERSTITIAL LUNG DISEASE [None]
